FAERS Safety Report 9065173 (Version 1)
Quarter: 2013Q1

REPORT INFORMATION
  Report Type: Spontaneous
  Country: US (occurrence: US)
  Receive Date: 20130214
  Receipt Date: 20130214
  Transmission Date: 20140127
  Serious: No
  Sender: FDA-Public Use
  Company Number: US-PFIZER INC-2013053502

PATIENT
  Sex: 0

DRUGS (1)
  1. HYDROCORTISONE [Suspect]
     Dosage: 5 MG, 3X/DAY (TID)

REACTIONS (1)
  - Dysphagia [Unknown]
